FAERS Safety Report 9908084 (Version 1)
Quarter: 2014Q1

REPORT INFORMATION
  Report Type: Spontaneous
  Country: US (occurrence: None)
  Receive Date: 20140212
  Receipt Date: 20140212
  Transmission Date: 20141002
  Serious: Yes (Life-Threatening, Hospitalization)
  Sender: FDA-Public Use
  Company Number: None

PATIENT
  Sex: Female
  Weight: 56.7 kg

DRUGS (19)
  1. METFORMIN HCL [Suspect]
     Indication: DIABETES MELLITUS
     Dosage: MOUTH?INJECTION
  2. METFORMIN HCL [Suspect]
     Indication: GASTRIC DISORDER
     Dosage: MOUTH?INJECTION
  3. METFORMIN HCL [Suspect]
     Dosage: MOUTH?INJECTION
  4. COMPAZINE [Suspect]
     Indication: DIABETES MELLITUS
     Dosage: MOUTH?INJECTION
  5. COMPAZINE [Suspect]
     Indication: GASTRIC DISORDER
     Dosage: MOUTH?INJECTION
  6. COMPAZINE [Suspect]
     Dosage: MOUTH?INJECTION
  7. PHENERAGAN [Suspect]
     Indication: DIABETES MELLITUS
     Dosage: MOUTH?INJECTION
  8. PHENERAGAN [Suspect]
     Indication: GASTRIC DISORDER
     Dosage: MOUTH?INJECTION
  9. PHENERAGAN [Suspect]
     Dosage: MOUTH?INJECTION
  10. JANUVIA [Concomitant]
  11. ZESTRIL [Concomitant]
  12. MYSOLINE [Concomitant]
  13. ATIVAN [Concomitant]
  14. GLUCOPHEGE XL [Concomitant]
  15. SINGULAIR [Concomitant]
  16. ARICEPT [Concomitant]
  17. CULTURELLE [Concomitant]
  18. B-12 [Concomitant]
  19. GLUCOSAMINE [Concomitant]

REACTIONS (4)
  - Swollen tongue [None]
  - Disorientation [None]
  - Hyperhidrosis [None]
  - Abnormal behaviour [None]
